FAERS Safety Report 7136067-X (Version None)
Quarter: 2010Q4

REPORT INFORMATION
  Report Type: 
  Country: None (occurrence: None)
  Receive Date: 20101204
  Receipt Date: 20101102
  Transmission Date: 20110411
  Serious: No
  Sender: FDA-Public Use
  Company Number: US-BAYER-201023356BCC

PATIENT
  Sex: Female
  Weight: 49.091 kg

DRUGS (3)
  1. ALEVE (CAPLET) [Suspect]
     Indication: ARTHRALGIA
     Dosage: 220 MG, ONCE
     Route: 048
     Dates: start: 20101101
  2. ACETYL SALICYLIC ACID USP BAT [Concomitant]
     Dosage: UNK
     Route: 048
  3. LOPRESSOR [Concomitant]

REACTIONS (1)
  - DIZZINESS [None]
